FAERS Safety Report 16920850 (Version 1)
Quarter: 2019Q4

REPORT INFORMATION
  Report Type: Spontaneous
  Country: FR (occurrence: FR)
  Receive Date: 20191015
  Receipt Date: 20191015
  Transmission Date: 20200122
  Serious: Yes (Hospitalization)
  Sender: FDA-Public Use
  Company Number: FR-009507513-1910FRA007155

PATIENT
  Age: 82 Year
  Sex: Male
  Weight: 69 kg

DRUGS (2)
  1. VENETOCLAX. [Suspect]
     Active Substance: VENETOCLAX
     Indication: ACUTE MYELOID LEUKAEMIA
     Dosage: 100 MILLIGRAM, 1 DAY (QD)
     Route: 048
     Dates: start: 20190322, end: 20190507
  2. NOXAFIL [Suspect]
     Active Substance: POSACONAZOLE
     Indication: OPPORTUNISTIC INFECTION PROPHYLAXIS
     Dosage: 3 DOSAGE FORM
     Route: 048
     Dates: start: 201903

REACTIONS (2)
  - Ileal stenosis [Not Recovered/Not Resolved]
  - Enteritis [Not Recovered/Not Resolved]

NARRATIVE: CASE EVENT DATE: 20190510
